FAERS Safety Report 7801527-2 (Version None)
Quarter: 2011Q4

REPORT INFORMATION
  Report Type: 
  Country: None (occurrence: None)
  Receive Date: 20111006
  Receipt Date: 20111006
  Transmission Date: 20120403
  Serious: No
  Sender: FDA-Public Use
  Company Number: None

PATIENT
  Age: 78 Year
  Sex: Male
  Weight: 88.6 kg

DRUGS (1)
  1. DRONEDARONE HCL [Suspect]
     Indication: ATRIAL FIBRILLATION
     Dosage: 400 MG BID PO
     Route: 048
     Dates: start: 20101001, end: 20110222

REACTIONS (5)
  - INTERSTITIAL LUNG DISEASE [None]
  - ORTHOPNOEA [None]
  - SYNCOPE [None]
  - PNEUMONIA ASPIRATION [None]
  - HAEMOPTYSIS [None]
